FAERS Safety Report 7828441-0 (Version None)
Quarter: 2011Q4

REPORT INFORMATION
  Report Type: 
  Country: None (occurrence: None)
  Receive Date: 20111020
  Receipt Date: 20111018
  Transmission Date: 20120403
  Serious: Yes (Other)
  Sender: FDA-Public Use
  Company Number: IE-BAYER-2011-100880

PATIENT
  Age: 49 Year
  Sex: Female

DRUGS (1)
  1. BETASERON [Suspect]
     Indication: SECONDARY PROGRESSIVE MULTIPLE SCLEROSIS
     Dosage: 250 MCG/24HR, UNK
     Route: 058
     Dates: start: 20010514

REACTIONS (4)
  - PAIN IN EXTREMITY [None]
  - INFLAMMATION [None]
  - CELLULITIS [None]
  - ERYTHEMA [None]
